FAERS Safety Report 7636095-1 (Version None)
Quarter: 2011Q3

REPORT INFORMATION
  Report Type: 
  Country: None (occurrence: None)
  Receive Date: 20110726
  Receipt Date: 20110718
  Transmission Date: 20111222
  Serious: Yes (Other)
  Sender: FDA-Public Use
  Company Number: US-JNJFOC-20110604359

PATIENT
  Sex: Female
  Weight: 61.24 kg

DRUGS (9)
  1. PRAMOSONE [Concomitant]
     Indication: URTICARIA
     Dosage: AS NEEDED
     Route: 061
  2. EVISTA [Concomitant]
     Indication: OSTEOPOROSIS
     Dosage: 60MG/TABLET/60MG/EVERY 4TH DAY
     Route: 048
     Dates: start: 20010101
  3. NEXIUM [Concomitant]
     Indication: GASTROOESOPHAGEAL REFLUX DISEASE
     Route: 048
  4. FLUOCINOLONE ACETONIDE [Concomitant]
     Indication: URTICARIA
     Dosage: AS NEEDED
     Route: 061
  5. METHOTREXATE [Concomitant]
     Indication: RHEUMATOID ARTHRITIS
     Route: 058
     Dates: start: 20010101
  6. PERCOCET [Concomitant]
     Indication: PAIN
     Dosage: AS NEEDED
     Route: 048
  7. ZOLPIDEM [Concomitant]
     Indication: SLEEP DISORDER
     Dosage: EVERY OTHER NIGHT
     Route: 048
  8. PREDNISONE [Concomitant]
     Indication: RHEUMATOID ARTHRITIS
     Route: 048
  9. REMICADE [Suspect]
     Indication: RHEUMATOID ARTHRITIS
     Route: 042
     Dates: start: 20110101

REACTIONS (2)
  - HEADACHE [None]
  - CHOKING SENSATION [None]
